FAERS Safety Report 16310342 (Version 1)
Quarter: 2019Q2

REPORT INFORMATION
  Report Type: Spontaneous
  Country: US (occurrence: US)
  Receive Date: 20190513
  Receipt Date: 20190513
  Transmission Date: 20190711
  Serious: Yes (Life-Threatening, Other)
  Sender: FDA-Public Use
  Company Number: None

PATIENT
  Age: 41 Year
  Sex: Female
  Weight: 63 kg

DRUGS (4)
  1. METHYLPHENIDATE ER 18 MG TAB AND 54 MG TAB (GENERIC FOR CONCERTA) [Suspect]
     Active Substance: METHYLPHENIDATE
     Indication: ATTENTION DEFICIT/HYPERACTIVITY DISORDER
     Dosage: ?          QUANTITY:1 TABLET(S);?
     Route: 048
     Dates: start: 20190406, end: 20190410
  2. METHYLPHENIDATE ER 18 MG TAB AND 54 MG TAB (GENERIC FOR CONCERTA) [Suspect]
     Active Substance: METHYLPHENIDATE
     Indication: NARCOLEPSY
     Dosage: ?          QUANTITY:1 TABLET(S);?
     Route: 048
     Dates: start: 20190406, end: 20190410
  3. METHYLPHENIDATE ER 54 MG TAB GENERIC FOR CONCERTA. 18 N 54 TOTAL 72MG [Suspect]
     Active Substance: METHYLPHENIDATE
     Indication: ATTENTION DEFICIT/HYPERACTIVITY DISORDER
     Dosage: ?          QUANTITY:1 TABLET(S);?
     Route: 048
     Dates: start: 20190406, end: 20190409
  4. METHYLPHENIDATE ER 54 MG TAB GENERIC FOR CONCERTA. 18 N 54 TOTAL 72MG [Suspect]
     Active Substance: METHYLPHENIDATE
     Indication: NARCOLEPSY
     Dosage: ?          QUANTITY:1 TABLET(S);?
     Route: 048
     Dates: start: 20190406, end: 20190409

REACTIONS (6)
  - Anaphylactic reaction [None]
  - Diarrhoea [None]
  - Abdominal pain [None]
  - Palpitations [None]
  - Drug level changed [None]
  - Generalised oedema [None]

NARRATIVE: CASE EVENT DATE: 20190406
